FAERS Safety Report 7455157-5 (Version None)
Quarter: 2011Q2

REPORT INFORMATION
  Report Type: 
  Country: None (occurrence: None)
  Receive Date: 20110503
  Receipt Date: 20080731
  Transmission Date: 20111010
  Serious: Yes (Other)
  Sender: FDA-Public Use
  Company Number: PHHY2008MX37380

PATIENT
  Sex: Female

DRUGS (1)
  1. CO-DIOVAN [Suspect]
     Indication: HYPERTENSION
     Dosage: 160 MG OF VALS AND 12.5 MG OF HYD PER DAY
     Dates: start: 20080101

REACTIONS (2)
  - TACHYCARDIA [None]
  - ARRHYTHMIA [None]
